FAERS Safety Report 7617635-5 (Version None)
Quarter: 2011Q3

REPORT INFORMATION
  Report Type: 
  Country: None (occurrence: None)
  Receive Date: 20110718
  Receipt Date: 20110707
  Transmission Date: 20111222
  Serious: Yes (Other)
  Sender: FDA-Public Use
  Company Number: CA-JNJFOC-20110704055

PATIENT
  Sex: Female
  Weight: 71 kg

DRUGS (10)
  1. REMICADE [Suspect]
     Indication: RHEUMATOID ARTHRITIS
     Dosage: 68 DOSES OF INFLIXIMAB
     Route: 042
  2. ASPIRIN [Concomitant]
  3. PREDNISONE [Concomitant]
  4. AMITRIPTYLINE HCL [Concomitant]
  5. FOLIC ACID [Concomitant]
  6. PRAVACHOL [Concomitant]
  7. ACTONEL [Concomitant]
  8. METOPROLOL TARTRATE [Concomitant]
  9. METHOTREXATE [Concomitant]
  10. MICARDIS [Concomitant]

REACTIONS (1)
  - FOOT FRACTURE [None]
